FAERS Safety Report 25538564 (Version 1)
Quarter: 2025Q3

REPORT INFORMATION
  Report Type: Spontaneous
  Country: EU (occurrence: EU)
  Receive Date: 20250710
  Receipt Date: 20250710
  Transmission Date: 20251020
  Serious: Yes (Hospitalization)
  Sender: AZURITY PHARMACEUTICALS
  Company Number: EU-AZURITY PHARMACEUTICALS, INC.-AZR202506-001888

PATIENT
  Age: 34 Year
  Sex: Male

DRUGS (6)
  1. PRILOSEC [Interacting]
     Active Substance: OMEPRAZOLE MAGNESIUM
     Indication: Suicide attempt
     Route: 048
     Dates: start: 20230603, end: 20230603
  2. ACETAMINOPHEN [Interacting]
     Active Substance: ACETAMINOPHEN
     Indication: Suicide attempt
     Route: 048
     Dates: start: 20230603, end: 20230603
  3. ALMAGATE [Interacting]
     Active Substance: ALMAGATE
     Indication: Suicide attempt
     Route: 048
     Dates: start: 20230603, end: 20230603
  4. AMOXICILLIN [Interacting]
     Active Substance: AMOXICILLIN
     Indication: Suicide attempt
     Route: 048
     Dates: start: 20230603, end: 20230603
  5. JANUMET [Interacting]
     Active Substance: METFORMIN HYDROCHLORIDE\SITAGLIPTIN PHOSPHATE
     Indication: Suicide attempt
     Route: 048
     Dates: start: 20230603, end: 20230603
  6. VALERIANA OFFICINALIS ROOT [Suspect]
     Active Substance: VALERIAN
     Indication: Suicide attempt
     Route: 065

REACTIONS (10)
  - Drug interaction [Unknown]
  - Hyperlactacidaemia [Recovered/Resolved]
  - Acute kidney injury [Recovered/Resolved]
  - Suicide attempt [Recovered/Resolved]
  - Intentional overdose [Recovered/Resolved]
  - Restlessness [Unknown]
  - Nausea [Unknown]
  - Agitation [Unknown]
  - Vomiting [Unknown]
  - Abdominal pain upper [Unknown]

NARRATIVE: CASE EVENT DATE: 20230603
